FAERS Safety Report 25172191 (Version 2)
Quarter: 2025Q2

REPORT INFORMATION
  Report Type: Spontaneous
  Country: SK (occurrence: SK)
  Receive Date: 20250408
  Receipt Date: 20250609
  Transmission Date: 20250716
  Serious: Yes (Other)
  Sender: ROCHE
  Company Number: SK-ROCHE-10000252234

PATIENT
  Age: 41 Year
  Sex: Female

DRUGS (3)
  1. PHESGO [Suspect]
     Active Substance: HYALURONIDASE-ZZXF\PERTUZUMAB\TRASTUZUMAB
     Indication: HER2 positive breast cancer
     Dosage: 600 MG/600 MG
     Route: 058
     Dates: start: 20231130
  2. ALVESCO [Concomitant]
     Active Substance: CICLESONIDE
     Dates: end: 202411
  3. PACLITAXEL [Concomitant]
     Active Substance: PACLITAXEL
     Dates: start: 20231123

REACTIONS (4)
  - Myocarditis [Not Recovered/Not Resolved]
  - Myopericarditis [Not Recovered/Not Resolved]
  - Ventricular dyskinesia [Not Recovered/Not Resolved]
  - Dyspnoea [Not Recovered/Not Resolved]

NARRATIVE: CASE EVENT DATE: 20250301
